FAERS Safety Report 21499115 (Version 1)
Quarter: 2022Q4

REPORT INFORMATION
  Report Type: Spontaneous
  Country: US (occurrence: None)
  Receive Date: 20221024
  Receipt Date: 20221024
  Transmission Date: 20230113
  Serious: Yes (Life-Threatening)
  Sender: FDA-Public Use
  Company Number: 2022A353154

PATIENT
  Age: 63 Year
  Sex: Female

DRUGS (5)
  1. OSIMERTINIB [Suspect]
     Active Substance: OSIMERTINIB
     Indication: Non-small cell lung cancer
     Route: 048
  2. ERLOTINIB [Concomitant]
     Active Substance: ERLOTINIB
  3. CARBOPLATIN [Concomitant]
     Active Substance: CARBOPLATIN
  4. PEMETREXED [Concomitant]
     Active Substance: PEMETREXED
  5. BEVACIZUMAB [Concomitant]
     Active Substance: BEVACIZUMAB

REACTIONS (1)
  - Pulmonary alveolar haemorrhage [Recovering/Resolving]
